FAERS Safety Report 6569207-1 (Version None)
Quarter: 2010Q1

REPORT INFORMATION
  Report Type: 
  Country: None (occurrence: None)
  Receive Date: 20100201
  Receipt Date: 20100201
  Transmission Date: 20100710
  Serious: No
  Sender: FDA-Public Use
  Company Number: None

PATIENT
  Age: 47 Year
  Sex: Female
  Weight: 56.6996 kg

DRUGS (1)
  1. ZICAM COLD REMEDY PLUS ZICAM LIQUID LOZENGES [Suspect]
     Indication: NASOPHARYNGITIS
     Dosage: 1 LOZENGE EVERY 3 HOURS
     Dates: start: 20091221, end: 20091223

REACTIONS (2)
  - AGEUSIA [None]
  - ANOSMIA [None]
